FAERS Safety Report 5888480-6 (Version None)
Quarter: 2008Q3

REPORT INFORMATION
  Report Type: 
  Country: None (occurrence: None)
  Receive Date: 20080917
  Receipt Date: 20080917
  Transmission Date: 20090109
  Serious: Yes (Other)
  Sender: FDA-Public Use
  Company Number: None

PATIENT
  Age: 64 Year
  Sex: Male
  Weight: 88.4514 kg

DRUGS (1)
  1. COLGATE PEPPERMINT [Suspect]
     Indication: DENTAL DISORDER PROPHYLAXIS
     Dosage: NORMAL AMOUNT 4 X DAILY
     Dates: start: 19850101, end: 20080401

REACTIONS (8)
  - DRUG HYPERSENSITIVITY [None]
  - FEAR [None]
  - FIBROMYALGIA [None]
  - JAW DISORDER [None]
  - MOUTH ULCERATION [None]
  - POISONING [None]
  - SWELLING [None]
  - SWOLLEN TONGUE [None]
